FAERS Safety Report 25912240 (Version 2)
Quarter: 2025Q4

REPORT INFORMATION
  Report Type: Spontaneous
  Country: EU (occurrence: EU)
  Receive Date: 20251013
  Receipt Date: 20251126
  Transmission Date: 20260118
  Serious: Yes (Other)
  Sender: AMGEN
  Company Number: EU-009507513-2335060

PATIENT
  Age: 67 Year
  Sex: Female

DRUGS (7)
  1. BEVACIZUMAB [Suspect]
     Active Substance: BEVACIZUMAB
     Indication: Vaginal neoplasm
     Dosage: UNK
     Route: 065
     Dates: start: 20250303, end: 20250527
  2. BEVACIZUMAB [Suspect]
     Active Substance: BEVACIZUMAB
     Dosage: UNK
     Route: 065
     Dates: start: 20250617, end: 20250704
  3. PEMBROLIZUMAB [Suspect]
     Active Substance: PEMBROLIZUMAB
     Indication: Vaginal neoplasm
     Dosage: 150 MILLIGRAM, Q3WK
     Route: 065
     Dates: start: 20250303, end: 20250527
  4. PEMBROLIZUMAB [Suspect]
     Active Substance: PEMBROLIZUMAB
     Dosage: 150 MILLIGRAM, Q3WK
     Route: 065
     Dates: start: 20250617, end: 20250704
  5. PEMBROLIZUMAB [Suspect]
     Active Substance: PEMBROLIZUMAB
     Dosage: 150 MILLIGRAM, Q3WK
     Route: 065
     Dates: start: 20250728, end: 20250728
  6. PACLITAXEL [Suspect]
     Active Substance: PACLITAXEL
     Indication: Vaginal neoplasm
     Dosage: UNK
     Route: 065
     Dates: start: 20250303, end: 20250527
  7. CARBOPLATIN [Suspect]
     Active Substance: CARBOPLATIN
     Indication: Vaginal neoplasm
     Dosage: UNK
     Route: 065
     Dates: start: 20250303, end: 20250527

REACTIONS (1)
  - Radiation necrosis [Unknown]

NARRATIVE: CASE EVENT DATE: 20250429
